FAERS Safety Report 6008050-9 (Version None)
Quarter: 2008Q4

REPORT INFORMATION
  Report Type: 
  Country: None (occurrence: None)
  Receive Date: 20081217
  Receipt Date: 20080807
  Transmission Date: 20090506
  Serious: No
  Sender: FDA-Public Use
  Company Number: US-ASTRAZENECA-2008UW16244

PATIENT
  Sex: Female
  Weight: 78.9 kg

DRUGS (2)
  1. CRESTOR [Suspect]
     Route: 048
     Dates: end: 20080802
  2. CRESTOR [Suspect]
     Route: 048
     Dates: start: 20080806

REACTIONS (3)
  - DEPRESSION [None]
  - MYALGIA [None]
  - PAIN IN EXTREMITY [None]
